FAERS Safety Report 8962751 (Version 1)
Quarter: 2012Q4

REPORT INFORMATION
  Report Type: 
  Country: US (occurrence: US)
  Receive Date: 20121214
  Receipt Date: 20121214
  Transmission Date: 20130627
  Serious: Yes (Hospitalization)
  Sender: FDA-Public Use
  Company Number: US-PURDUE-USA-2012-0096751

PATIENT
  Age: 23 Year
  Sex: Female
  Weight: 55.3 kg

DRUGS (32)
  1. DILAUDID TABLET [Suspect]
     Indication: RHEUMATOID ARTHRITIS
     Dosage: 4 mg, q6h
  2. DILAUDID TABLET [Suspect]
     Dosage: 4 , 4 mg, daily
     Dates: start: 200807
  3. DILAUDID TABLET [Suspect]
     Dosage: 2,16mg daily
     Dates: start: 200810
  4. MS CONTIN TABLETS [Suspect]
     Indication: RHEUMATOID ARTHRITIS
     Dosage: 4 ,15 mg in 4 days
     Route: 048
  5. MS CONTIN TABLETS [Suspect]
     Dosage: 2, 15 mg daily
     Route: 048
     Dates: start: 20081016
  6. MS CONTIN TABLETS [Suspect]
     Dosage: 2, 200 mg daily
     Route: 048
     Dates: start: 200908
  7. OCRELIZUMAB [Suspect]
     Indication: RHEUMATOID ARTHRITIS
     Dosage: 200 mg, see text
     Route: 042
     Dates: start: 20080918
  8. OCRELIZUMAB [Suspect]
     Dosage: 200 mg, see text
     Route: 042
     Dates: start: 20081001
  9. OCRELIZUMAB [Suspect]
     Dosage: 200 mg, see text
     Route: 042
     Dates: start: 20090413
  10. OCRELIZUMAB [Suspect]
     Dosage: 200 mg, see text
     Route: 042
     Dates: start: 20090427
  11. OCRELIZUMAB [Suspect]
     Dosage: 200 mg, see text
     Route: 042
     Dates: start: 20090901
  12. OCRELIZUMAB [Suspect]
     Dosage: 200 mg, see text
     Route: 042
     Dates: start: 20090915
  13. OCRELIZUMAB [Suspect]
     Dosage: 200 mg, see text
     Route: 042
     Dates: start: 20091001
  14. OCRELIZUMAB [Suspect]
     Dosage: 200 mg, see text
     Route: 042
     Dates: start: 20091016
  15. OCRELIZUMAB [Suspect]
     Dosage: 500 mg, UNK
     Route: 042
     Dates: start: 20090901
  16. OCRELIZUMAB [Suspect]
     Dosage: 500 mg, UNK
     Route: 042
     Dates: start: 20090915
  17. OCRELIZUMAB [Suspect]
     Dosage: 500 mg, UNK
     Route: 042
     Dates: start: 20091123
  18. OCRELIZUMAB [Suspect]
     Dosage: 500 mg, UNK
     Route: 042
     Dates: start: 20091207
  19. METHOTREXATE [Suspect]
     Indication: RHEUMATOID ARTHRITIS
     Dosage: 0.6 ml, UNK
  20. METHOTREXATE [Suspect]
     Dosage: 50 mg, weekly
  21. METHOTREXATE [Suspect]
     Dosage: 15 mg, UNK
     Dates: start: 200706
  22. FLEXERIL                           /00428402/ [Concomitant]
     Indication: PRODUCT USED FOR UNKNOWN INDICATION
     Dosage: 10 mg, q8h prn
     Route: 048
     Dates: start: 20090202
  23. CITALOPRAM [Concomitant]
     Indication: DEPRESSION
     Dosage: 10 mg, UNK
     Route: 048
  24. CITALOPRAM [Concomitant]
     Dosage: 20 mg, UNK
     Route: 048
     Dates: start: 200804
  25. CITALOPRAM [Concomitant]
     Dosage: 20 mg, UNK
     Route: 048
     Dates: start: 20080731
  26. PREDNISONE [Concomitant]
     Indication: RHEUMATOID ARTHRITIS
     Dosage: 5 mg, UNK
     Route: 048
     Dates: start: 200703
  27. LISINOPRIL [Concomitant]
     Indication: HYPERTENSION
     Dosage: 5 mg, UNK
  28. LOESTRIN [Concomitant]
     Indication: PRODUCT USED FOR UNKNOWN INDICATION
     Dosage: UNK, daily
  29. PREVACID [Concomitant]
     Indication: PRODUCT USED FOR UNKNOWN INDICATION
     Dosage: 30 mg, UNK
     Dates: start: 200804
  30. NOVOLOG [Concomitant]
     Indication: DIABETES MELLITUS
     Dosage: TDD: ^sliding^ scale, 3 units + 1 unit for every 25 mg/dl of greater than
     Dates: start: 199804
  31. PHENERGAN                          /00033001/ [Concomitant]
     Indication: NAUSEA
     Dosage: 25 mg, UNK
     Route: 048
  32. LIDODERM [Concomitant]
     Indication: PRODUCT USED FOR UNKNOWN INDICATION
     Dosage: 5 %, UNK
     Route: 062
     Dates: start: 20090202

REACTIONS (10)
  - Drug withdrawal syndrome [Unknown]
  - Diabetic ketoacidosis [Recovered/Resolved]
  - Incorrect dose administered [Unknown]
  - Joint swelling [Unknown]
  - Pain in extremity [Unknown]
  - Sensation of heaviness [Unknown]
  - Upper respiratory tract infection [Unknown]
  - Inadequate analgesia [Unknown]
  - Oedema peripheral [Unknown]
  - Gastroenteritis [Unknown]
